FAERS Safety Report 4677509-9 (Version None)
Quarter: 2005Q2

REPORT INFORMATION
  Report Type: 
  Country: None (occurrence: None)
  Receive Date: 20050527
  Receipt Date: 20050527
  Transmission Date: 20051028
  Serious: Yes (Hospitalization)
  Sender: FDA-Public Use
  Company Number: None

PATIENT
  Age: 38 Year
  Sex: Male
  Weight: 126.1 kg

DRUGS (5)
  1. ROCEPHIN [Suspect]
     Indication: PROPHYLAXIS
     Dosage: 2 GRAMS  IV INTRAVENOUS
     Route: 042
     Dates: start: 20040324, end: 20050324
  2. LIPITOR [Concomitant]
  3. CRESTOR [Concomitant]
  4. RENOGRAFIN 60% [Concomitant]
  5. .. [Concomitant]

REACTIONS (3)
  - ERYTHEMA [None]
  - NAUSEA [None]
  - PRURITUS [None]
